FAERS Safety Report 6895250-9 (Version None)
Quarter: 2010Q3

REPORT INFORMATION
  Report Type: 
  Country: None (occurrence: None)
  Receive Date: 20100802
  Receipt Date: 20100722
  Transmission Date: 20110219
  Serious: Yes (Other)
  Sender: FDA-Public Use
  Company Number: CA-JNJFOC-20100707563

PATIENT
  Sex: Male
  Weight: 76 kg

DRUGS (4)
  1. REMICADE [Suspect]
     Indication: COLITIS ULCERATIVE
     Dosage: 8 DOSES ON UNSPECIFIED DATES
     Route: 042
  2. REMICADE [Suspect]
     Dosage: 10TH INFUSION
     Route: 042
  3. REMICADE [Suspect]
     Dosage: 9TH INFUSION
     Route: 042
  4. SOLU-CORTEF [Suspect]
     Indication: PRODUCT USED FOR UNKNOWN INDICATION

REACTIONS (6)
  - BRADYCARDIA [None]
  - DIZZINESS [None]
  - HYPERHIDROSIS [None]
  - HYPOTENSION [None]
  - SKIN DISCOLOURATION [None]
  - VISION BLURRED [None]
